FAERS Safety Report 5765701-1 (Version None)
Quarter: 2008Q2

REPORT INFORMATION
  Report Type: 
  Country: None (occurrence: None)
  Receive Date: 20080605
  Receipt Date: 20080526
  Transmission Date: 20081010
  Serious: Yes (Disabling)
  Sender: FDA-Public Use
  Company Number: GXKR2008GB04772

PATIENT
  Age: 50 Year
  Sex: Female
  Weight: 90 kg

DRUGS (5)
  1. DIAZEPAM [Suspect]
     Dosage: 60 MG,
  2. MIRTAZAPINE [Suspect]
     Dosage: 30 MG, QD
     Dates: start: 20071101
  3. ACAMPROSTATE (ACAMPROSTATE) [Suspect]
     Dosage: 666 MG, TID
     Dates: start: 20070101
  4. ARIPIPRAZOLE [Suspect]
     Dosage: 10 MG, QD
  5. VENLAFAXINE (VANLAFAXINE) [Suspect]
     Dosage: 150 MG

REACTIONS (1)
  - DEAFNESS NEUROSENSORY [None]
